FAERS Safety Report 11393230 (Version 1)
Quarter: 2015Q3

REPORT INFORMATION
  Report Type: Spontaneous
  Country: US (occurrence: US)
  Receive Date: 20150818
  Receipt Date: 20150818
  Transmission Date: 20151125
  Serious: No
  Sender: FDA-Public Use
  Company Number: US-COREPHARMA LLC-2014COR00152

PATIENT
  Age: 84 Year
  Sex: Female
  Weight: 115.65 kg

DRUGS (14)
  1. VITAMIN D [Suspect]
     Active Substance: CHOLECALCIFEROL
     Dosage: UNK
     Dates: end: 201501
  2. CARDIZEM [Concomitant]
     Active Substance: DILTIAZEM HYDROCHLORIDE
  3. METOPROLOL [Concomitant]
     Active Substance: METOPROLOL
  4. METHENAMINE HIPPURATE. [Suspect]
     Active Substance: METHENAMINE HIPPURATE
     Indication: PROPHYLAXIS URINARY TRACT INFECTION
     Dosage: 1 G, 2X/DAY
     Route: 048
     Dates: start: 201312, end: 2014
  5. METHENAMINE HIPPURATE. [Suspect]
     Active Substance: METHENAMINE HIPPURATE
     Dosage: 1 G, 1X/DAY
     Route: 048
     Dates: start: 2014
  6. FISH OIL [Suspect]
     Active Substance: FISH OIL
     Dosage: UNK
     Dates: end: 201501
  7. PEPCID [Concomitant]
     Active Substance: FAMOTIDINE
  8. MULTIVITAMIN [Concomitant]
     Active Substance: VITAMINS
  9. MONTELUKAST [Concomitant]
     Active Substance: MONTELUKAST SODIUM
  10. CRANBERRY. [Concomitant]
     Active Substance: CRANBERRY
  11. TYLENOL [Suspect]
     Active Substance: ACETAMINOPHEN
     Indication: PAIN
     Dosage: 160 MG, UNK
     Dates: end: 201501
  12. XELJANZ [Suspect]
     Active Substance: TOFACITINIB CITRATE
     Dosage: 5 MG, UNK
  13. PREVACID [Concomitant]
     Active Substance: LANSOPRAZOLE
  14. CALCIUM CITRATE [Concomitant]
     Active Substance: CALCIUM CITRATE

REACTIONS (2)
  - Aspartate aminotransferase increased [Not Recovered/Not Resolved]
  - Alanine aminotransferase increased [Not Recovered/Not Resolved]

NARRATIVE: CASE EVENT DATE: 20141208
